FAERS Safety Report 19903612 (Version 4)
Quarter: 2021Q4

REPORT INFORMATION
  Report Type: Spontaneous
  Country: US (occurrence: US)
  Receive Date: 20211001
  Receipt Date: 20211110
  Transmission Date: 20220303
  Serious: No
  Sender: FDA-Public Use
  Company Number: US-UNITED THERAPEUTICS-UNT-2021-019317

PATIENT
  Sex: Female
  Weight: 81.633 kg

DRUGS (5)
  1. TYVASO [Suspect]
     Active Substance: TREPROSTINIL
     Indication: Pulmonary arterial hypertension
     Dosage: UNK
     Dates: start: 20210916
  2. TYVASO [Suspect]
     Active Substance: TREPROSTINIL
     Dosage: 18-54 ?G, QID
     Dates: start: 202109
  3. TYVASO [Suspect]
     Active Substance: TREPROSTINIL
     Dosage: 18 ?G
     Dates: start: 202109
  4. TYVASO [Suspect]
     Active Substance: TREPROSTINIL
     Dosage: 12 ?G, QID
     Dates: start: 202109
  5. TYVASO [Suspect]
     Active Substance: TREPROSTINIL
     Dosage: 18-72 ?G, QID
     Dates: start: 202109, end: 2021

REACTIONS (7)
  - Headache [Recovering/Resolving]
  - Cough [Recovering/Resolving]
  - Dizziness [Recovering/Resolving]
  - Throat irritation [Recovering/Resolving]
  - Pain in jaw [Unknown]
  - Dyspnoea [Unknown]
  - Intentional product use issue [Unknown]

NARRATIVE: CASE EVENT DATE: 20210101
